FAERS Safety Report 5842584-2 (Version None)
Quarter: 2008Q3

REPORT INFORMATION
  Report Type: 
  Country: None (occurrence: None)
  Receive Date: 20080812
  Receipt Date: 20080805
  Transmission Date: 20090109
  Serious: Yes (Other)
  Sender: FDA-Public Use
  Company Number: US-GILEAD-2008-0017622

PATIENT
  Sex: Female

DRUGS (10)
  1. LETAIRIS [Suspect]
     Indication: PULMONARY ARTERIAL HYPERTENSION
     Route: 048
     Dates: start: 20080225
  2. REVATIO [Concomitant]
  3. NORVASC [Concomitant]
  4. COUMADIN [Concomitant]
  5. CELLCEPT [Concomitant]
  6. METOLAZONE [Concomitant]
  7. FORADIL [Concomitant]
  8. DIPHENHYDRAMINE HCL [Concomitant]
  9. AMBIEN [Concomitant]
  10. K-DUR [Concomitant]

REACTIONS (2)
  - ANAEMIA [None]
  - ARTHRALGIA [None]
